FAERS Safety Report 13627362 (Version 2)
Quarter: 2017Q2

REPORT INFORMATION
  Report Type: Spontaneous
  Country: CH (occurrence: CH)
  Receive Date: 20170608
  Receipt Date: 20170614
  Transmission Date: 20170830
  Serious: Yes (Hospitalization)
  Sender: FDA-Public Use
  Company Number: CH-PFIZER INC-2017243253

PATIENT
  Age: 78 Year
  Sex: Female
  Weight: 52 kg

DRUGS (12)
  1. METOLAZON [Suspect]
     Active Substance: METOLAZONE
     Dosage: 5 MG (1-0-0-0), 1X/DAY
     Route: 048
  2. CALCIMAGON D3 [Concomitant]
     Active Substance: CALCIUM\CHOLECALCIFEROL
     Dosage: 0-1-0-0
  3. ALDACTONE [Suspect]
     Active Substance: SPIRONOLACTONE
     Dosage: 25 MG (1-0-0-0), 1X/DAY
     Route: 048
  4. DIGOXIN SANDOZ [Suspect]
     Active Substance: DIGOXIN
     Dosage: UNK
     Dates: end: 20161019
  5. SURMONTIL [Concomitant]
     Active Substance: TRIMIPRAMINE MALEATE
     Dosage: 25 MG (0-0-1-0), 1X/DAY
     Route: 048
  6. DAFALGAN [Concomitant]
     Active Substance: ACETAMINOPHEN
     Dosage: 500 MG (1-1-1-0), 3X/DAY
     Route: 048
  7. TORASEMID MEPHA [Suspect]
     Active Substance: TORSEMIDE
     Dosage: 200 MG (1/2-0-0-0), 1/2X/DAY
     Dates: end: 20170201
  8. DIGOXIN SANDOZ [Suspect]
     Active Substance: DIGOXIN
     Indication: CARDIAC FAILURE
     Dosage: 0.25 MG (1/2-0-0-0), 1/2 X/DAY
     Route: 048
     Dates: start: 20161205, end: 20170201
  9. ACIDUM FOLICUM STREULI [Concomitant]
     Active Substance: FOLIC ACID
     Dosage: 5 MG (1-0-0-0), 1X/DAY
     Route: 048
  10. VITAMIN D3 STREULI [Concomitant]
     Active Substance: CHOLECALCIFEROL
     Dosage: 1 DF (12-0-0-0), UNK (1 DF = 100 IU/DROP)
  11. CONCOR [Concomitant]
     Active Substance: BISOPROLOL FUMARATE
     Dosage: 2.5MG (1-0-1-0) 2X/DAY
     Route: 048
     Dates: start: 20160831
  12. XARELTO [Concomitant]
     Active Substance: RIVAROXABAN
     Dosage: 20 MG (0-0-1-0), 1X/DAY
     Route: 048
     Dates: start: 20160831

REACTIONS (9)
  - Metabolic alkalosis [Recovered/Resolved]
  - Vertigo [Recovered/Resolved]
  - Disturbance in attention [Recovered/Resolved]
  - Dyschromatopsia [Recovered/Resolved]
  - Bradycardia [Recovered/Resolved]
  - Electrocardiogram ST segment depression [Recovered/Resolved]
  - Acute kidney injury [Recovered/Resolved]
  - Fatigue [Recovered/Resolved]
  - Toxicity to various agents [Recovered/Resolved]

NARRATIVE: CASE EVENT DATE: 20170128
